FAERS Safety Report 20696900 (Version 1)
Quarter: 2022Q2

REPORT INFORMATION
  Report Type: Spontaneous
  Country: US (occurrence: US)
  Receive Date: 20220411
  Receipt Date: 20220411
  Transmission Date: 20220721
  Serious: No
  Sender: FDA-Public Use
  Company Number: US-Adamas_Pharmaceuticals-USA-POI1235202100103

PATIENT
  Age: 78 Year
  Sex: Female

DRUGS (2)
  1. OSMOLEX ER [Suspect]
     Active Substance: AMANTADINE
     Indication: Product used for unknown indication
     Dates: start: 202109, end: 20211005
  2. OSMOLEX ER [Suspect]
     Active Substance: AMANTADINE
     Dates: start: 20211006, end: 20211011

REACTIONS (5)
  - Hallucination [Unknown]
  - Insomnia [Unknown]
  - Balance disorder [Unknown]
  - Depression [Unknown]
  - Therapeutic product effect incomplete [Unknown]

NARRATIVE: CASE EVENT DATE: 20211005
